FAERS Safety Report 12257697 (Version 2)
Quarter: 2019Q4

REPORT INFORMATION
  Report Type: Spontaneous
  Country: US (occurrence: US)
  Receive Date: 20160412
  Receipt Date: 20191219
  Transmission Date: 20200122
  Serious: Yes (Other)
  Sender: FDA-Public Use
  Company Number: US-PFIZER INC-2016204845

PATIENT
  Age: 54 Year
  Sex: Male

DRUGS (9)
  1. VIAGRA [Suspect]
     Active Substance: SILDENAFIL CITRATE
     Indication: ERECTILE DYSFUNCTION
     Dosage: 100 MG, UNK (APPROXIMATELY 10 DAYS PER MONTH)
     Route: 048
     Dates: start: 20040109, end: 20140701
  2. CIALIS [Suspect]
     Active Substance: TADALAFIL
     Indication: BENIGN PROSTATIC HYPERPLASIA
     Dosage: UNK (CONSUMED TWO SAMPLES)
     Route: 048
     Dates: start: 2009
  3. ANDROGEL [Concomitant]
     Active Substance: TESTOSTERONE
     Indication: ERECTILE DYSFUNCTION
  4. VIAGRA [Suspect]
     Active Substance: SILDENAFIL CITRATE
     Indication: BENIGN PROSTATIC HYPERPLASIA
     Dosage: UNK, (CONSUMED TWO SAMPLES)
     Route: 048
     Dates: start: 2009
  5. ANDROGEL [Concomitant]
     Active Substance: TESTOSTERONE
     Indication: HYPOGONADISM
     Dosage: 1062 %, UNK (ONE HALF PUMP TO SKIN 5 DAYS PER WEEK)
     Dates: start: 20111209
  6. CIALIS [Suspect]
     Active Substance: TADALAFIL
     Indication: ERECTILE DYSFUNCTION
     Dosage: 2.5 MG, DAILY
     Route: 048
     Dates: start: 20090812, end: 20140917
  7. FLOMAX [Concomitant]
     Active Substance: TAMSULOSIN HYDROCHLORIDE
     Indication: PROSTATITIS
     Dosage: 0.4 MG, UNK (USED ONLY WHEN FLARE UP OF DYSURIA, APPROXIMATELY ONCE A MONTH)
     Dates: start: 20010125, end: 20121012
  8. TAMSULOSIN [Concomitant]
     Active Substance: TAMSULOSIN
     Indication: BENIGN PROSTATIC HYPERPLASIA
     Dosage: 0.4 MG, DAILY
     Dates: start: 20110914, end: 20121012
  9. FLOMAX [Concomitant]
     Active Substance: TAMSULOSIN HYDROCHLORIDE
     Indication: DYSURIA
     Dosage: 0.4 MG, UNK (USED ONLY WHEN FLARE UP OF DYSURIA, APPROXIMATELY ONCE A MONTH)

REACTIONS (5)
  - Lentigo maligna [Unknown]
  - Anxiety [Unknown]
  - Malignant melanoma [Unknown]
  - Emotional distress [Unknown]
  - Malignant melanoma in situ [Unknown]

NARRATIVE: CASE EVENT DATE: 20121011
